FAERS Safety Report 11308626 (Version 1)
Quarter: 2015Q3

REPORT INFORMATION
  Report Type: Spontaneous
  Country: FR (occurrence: FR)
  Receive Date: 20150724
  Receipt Date: 20150724
  Transmission Date: 20151125
  Serious: Yes (Death, Hospitalization)
  Sender: FDA-Public Use
  Company Number: PHHY2015FR087905

PATIENT
  Age: 51 Year
  Sex: Male
  Weight: 71 kg

DRUGS (15)
  1. LOVENOX [Concomitant]
     Active Substance: ENOXAPARIN SODIUM
     Indication: CARDIAC DISORDER
     Dosage: UNK
     Route: 065
     Dates: start: 201504
  2. AFINITOR [Suspect]
     Active Substance: EVEROLIMUS
     Indication: PRODUCT USED FOR UNKNOWN INDICATION
     Dosage: 10 MG, QD
     Route: 065
     Dates: start: 201503
  3. INEXIUM//ESOMEPRAZOLE MAGNESIUM [Concomitant]
     Active Substance: ESOMEPRAZOLE MAGNESIUM
     Indication: GASTRIC DISORDER
     Dosage: UNK
     Route: 065
     Dates: start: 201410
  4. LYRICA [Concomitant]
     Active Substance: PREGABALIN
     Indication: PAIN
     Dosage: UNK
     Route: 065
     Dates: start: 201501
  5. CIFLOX [Concomitant]
     Active Substance: CIPROFLOXACIN
     Indication: IMPAIRED HEALING
     Dosage: UNK
     Route: 005
     Dates: start: 201501
  6. VANCOMYCINE [Concomitant]
     Active Substance: VANCOMYCIN
     Indication: IMPAIRED HEALING
     Dosage: UNK
     Route: 065
     Dates: start: 201501
  7. SEROPLEX [Concomitant]
     Active Substance: ESCITALOPRAM OXALATE
     Indication: ANXIETY
     Dosage: UNK
     Route: 065
     Dates: start: 201504
  8. ACTISKENAN [Concomitant]
     Active Substance: MORPHINE SULFATE
     Indication: PRODUCT USED FOR UNKNOWN INDICATION
     Dosage: UNK, ACTISKENAM SUPPLIMENT
     Route: 065
     Dates: start: 201504
  9. SKENAN [Concomitant]
     Active Substance: MORPHINE SULFATE
     Indication: PAIN
     Dosage: UNK
     Route: 065
     Dates: start: 201502
  10. LYRICA [Concomitant]
     Active Substance: PREGABALIN
     Indication: ANXIETY
     Dosage: UNK
     Route: 065
     Dates: start: 201502
  11. RIVOTRIL [Concomitant]
     Active Substance: CLONAZEPAM
     Indication: PAIN
     Dosage: UNK
     Route: 065
     Dates: start: 201501
  12. TIENAM [Concomitant]
     Active Substance: CILASTATIN SODIUM\IMIPENEM
     Indication: INFECTION
     Dosage: UNK
     Route: 065
     Dates: start: 201502
  13. SOLUPRED [Concomitant]
     Active Substance: PREDNISOLONE
     Indication: ANAEMIA
     Dosage: UNK
     Route: 065
     Dates: start: 201504
  14. PYOSTACINE [Concomitant]
     Active Substance: PRISTINAMYCIN
     Indication: IMPAIRED HEALING
     Dosage: UNK
     Route: 065
     Dates: start: 201501
  15. FORTUM//CEFTAZIDIME [Concomitant]
     Indication: IMPAIRED HEALING
     Dosage: UNK
     Route: 065
     Dates: start: 201501

REACTIONS (4)
  - Ascites [Fatal]
  - Disease progression [Fatal]
  - Pupils unequal [Not Recovered/Not Resolved]
  - Thrombocytopenia [Not Recovered/Not Resolved]

NARRATIVE: CASE EVENT DATE: 201504
